FAERS Safety Report 20359738 (Version 2)
Quarter: 2022Q1

REPORT INFORMATION
  Report Type: Spontaneous
  Country: US (occurrence: US)
  Receive Date: 20220121
  Receipt Date: 20220204
  Transmission Date: 20220423
  Serious: No
  Sender: FDA-Public Use
  Company Number: US-ORGANON-O2201USA001426

PATIENT
  Sex: Female

DRUGS (2)
  1. ASMANEX [Suspect]
     Active Substance: MOMETASONE FUROATE
     Indication: Asthma
     Dosage: 1-2 PUFFS DAILY (120 DOSE)
  2. ASMANEX [Suspect]
     Active Substance: MOMETASONE FUROATE
     Indication: Asthma
     Dosage: 1-2 PUFFS DAILY (120 DOSE)

REACTIONS (4)
  - Chest discomfort [Recovering/Resolving]
  - Device malfunction [Unknown]
  - Poor quality device used [Unknown]
  - Incorrect dose administered [Unknown]
